FAERS Safety Report 6971030-0 (Version None)
Quarter: 2010Q3

REPORT INFORMATION
  Report Type: 
  Country: None (occurrence: None)
  Receive Date: 20100824
  Receipt Date: 20100223
  Transmission Date: 20110219
  Serious: Yes (Other)
  Sender: FDA-Public Use
  Company Number: 2010024100

PATIENT
  Age: 51 Year
  Sex: Male

DRUGS (4)
  1. NORVASC [Suspect]
  2. LISINOPRIL [Suspect]
  3. MICARDIS [Suspect]
  4. DIOVAN [Suspect]

REACTIONS (5)
  - COUGH [None]
  - DRUG INEFFECTIVE [None]
  - HYPOAESTHESIA FACIAL [None]
  - HYPOAESTHESIA ORAL [None]
  - HYPOAESTHESIA TEETH [None]
